FAERS Safety Report 14391949 (Version 1)
Quarter: 2018Q1

REPORT INFORMATION
  Report Type: Report from Study
  Country: US (occurrence: US)
  Receive Date: 20180116
  Receipt Date: 20180116
  Transmission Date: 20180509
  Serious: Yes (Death, Hospitalization)
  Sender: FDA-Public Use
  Company Number: US-JNJFOC-20170724590

PATIENT
  Age: 72 Year
  Sex: Male

DRUGS (12)
  1. BABY ASPIRIN [Concomitant]
     Active Substance: ASPIRIN
  2. ALBUTEROL. [Concomitant]
     Active Substance: ALBUTEROL
  3. COREG [Concomitant]
     Active Substance: CARVEDILOL
  4. IMBRUVICA [Suspect]
     Active Substance: IBRUTINIB
     Indication: CHRONIC LYMPHOCYTIC LEUKAEMIA
     Route: 048
     Dates: start: 20170330
  5. TESSALON [Concomitant]
     Active Substance: BENZONATATE
  6. ALLOPURINOL. [Concomitant]
     Active Substance: ALLOPURINOL
  7. PLAVIX [Concomitant]
     Active Substance: CLOPIDOGREL BISULFATE
  8. COZAAR [Concomitant]
     Active Substance: LOSARTAN POTASSIUM
  9. CALCITRIOL. [Concomitant]
     Active Substance: CALCITRIOL
  10. LASIX [Concomitant]
     Active Substance: FUROSEMIDE
  11. INSULIN [Concomitant]
     Active Substance: INSULIN NOS
  12. IMBRUVICA [Suspect]
     Active Substance: IBRUTINIB
     Indication: LYMPHOCYTIC LEUKAEMIA
     Route: 048
     Dates: start: 20170330

REACTIONS (4)
  - Brain hypoxia [Not Recovered/Not Resolved]
  - Syncope [Not Recovered/Not Resolved]
  - Fall [Recovered/Resolved]
  - Cardiac arrest [Fatal]

NARRATIVE: CASE EVENT DATE: 20170705
